FAERS Safety Report 20190490 (Version 1)
Quarter: 2021Q4

REPORT INFORMATION
  Report Type: Spontaneous
  Country: US (occurrence: US)
  Receive Date: 20211215
  Receipt Date: 20211215
  Transmission Date: 20220303
  Serious: Yes (Other)
  Sender: FDA-Public Use
  Company Number: US-GLAND PHARMA LIMITED-2021US008428

PATIENT
  Age: 60 Year
  Sex: Female

DRUGS (4)
  1. OXALIPLATIN [Suspect]
     Active Substance: OXALIPLATIN
     Indication: Pancreatic carcinoma metastatic
     Dosage: UNK
     Route: 065
     Dates: start: 201910
  2. FLUOROURACIL [Suspect]
     Active Substance: FLUOROURACIL
     Indication: Pancreatic carcinoma metastatic
     Dosage: UNK
     Route: 065
     Dates: start: 201910
  3. LEUCOVORIN [Suspect]
     Active Substance: LEUCOVORIN
     Indication: Pancreatic carcinoma metastatic
     Dosage: UNK
     Route: 065
     Dates: start: 201910
  4. IRINOTECAN [Suspect]
     Active Substance: IRINOTECAN
     Indication: Pancreatic carcinoma metastatic
     Dosage: UNK
     Route: 065
     Dates: start: 201910

REACTIONS (2)
  - Pancreatic carcinoma metastatic [Recovering/Resolving]
  - Product use in unapproved indication [Recovered/Resolved]
